FAERS Safety Report 7162520-9 (Version None)
Quarter: 2010Q4

REPORT INFORMATION
  Report Type: 
  Country: None (occurrence: None)
  Receive Date: 20101215
  Receipt Date: 20101208
  Transmission Date: 20110411
  Serious: Yes (Other)
  Sender: FDA-Public Use
  Company Number: US-JNJFOC-20101007197

PATIENT
  Sex: Female
  Weight: 60.42 kg

DRUGS (1)
  1. TRAMADOL HYDROCHLORIDE [Suspect]
     Indication: SYSTEMIC LUPUS ERYTHEMATOSUS
     Dosage: TWICE DAILY
     Route: 048

REACTIONS (1)
  - DRUG SCREEN POSITIVE [None]
